FAERS Safety Report 17488414 (Version 1)
Quarter: 2020Q1

REPORT INFORMATION
  Report Type: Spontaneous
  Country: RU (occurrence: RU)
  Receive Date: 20200303
  Receipt Date: 20200303
  Transmission Date: 20200409
  Serious: Yes (Hospitalization, Other)
  Sender: FDA-Public Use
  Company Number: NVSC2020RU058128

PATIENT
  Age: 97 Year
  Sex: Male

DRUGS (1)
  1. METHYLPREDNISOLONE. [Suspect]
     Active Substance: METHYLPREDNISOLONE
     Indication: EVANS SYNDROME
     Dosage: 8 MG
     Route: 065
     Dates: start: 2015

REACTIONS (10)
  - Product use in unapproved indication [Unknown]
  - Osteoporosis [Unknown]
  - Gait disturbance [Unknown]
  - Spinal compression fracture [Unknown]
  - Peripheral swelling [Unknown]
  - Spinal pain [Unknown]
  - Dyspnoea [Unknown]
  - Contusion [Unknown]
  - Dizziness [Unknown]
  - Arthralgia [Unknown]

NARRATIVE: CASE EVENT DATE: 20160310
